FAERS Safety Report 4514772-9 (Version None)
Quarter: 2004Q4

REPORT INFORMATION
  Report Type: 
  Country: None (occurrence: None)
  Receive Date: 20041124
  Receipt Date: 20041124
  Transmission Date: 20050328
  Serious: Yes (Hospitalization, Disabling)
  Sender: FDA-Public Use
  Company Number: None

PATIENT
  Sex: Female
  Weight: 67.1324 kg

DRUGS (2)
  1. EFFEXOR XR [Suspect]
     Indication: BIPOLAR DISORDER
     Dosage: 75 MG  BID ORAL
     Route: 048
     Dates: start: 20020301, end: 20041031
  2. WELLBUTRIN SR [Suspect]
     Dosage: 100 MG  BID ORAL
     Route: 048

REACTIONS (1)
  - SUICIDE ATTEMPT [None]
